FAERS Safety Report 25505085 (Version 4)
Quarter: 2025Q4

REPORT INFORMATION
  Report Type: Report from Study
  Country: KR (occurrence: KR)
  Receive Date: 20250702
  Receipt Date: 20251111
  Transmission Date: 20260117
  Serious: Yes (Other)
  Sender: ASTELLAS
  Company Number: KR-ASTELLAS-2025-AER-035107

PATIENT
  Age: 79 Year
  Sex: Male
  Weight: 62 kg

DRUGS (34)
  1. ENFORTUMAB VEDOTIN-EJFV [Suspect]
     Active Substance: ENFORTUMAB VEDOTIN-EJFV
     Indication: Transitional cell carcinoma metastatic
     Dosage: 1.25 MG/KG CYCLE 1
     Route: 042
     Dates: start: 20240820
  2. ENFORTUMAB VEDOTIN-EJFV [Suspect]
     Active Substance: ENFORTUMAB VEDOTIN-EJFV
     Dosage: 1.25 MG/KG CYCLE 1
     Route: 042
     Dates: start: 20240827
  3. ENFORTUMAB VEDOTIN-EJFV [Suspect]
     Active Substance: ENFORTUMAB VEDOTIN-EJFV
     Dosage: 1.25 MG/KG CYCLE 1
     Route: 042
     Dates: start: 20240903, end: 20240903
  4. ENFORTUMAB VEDOTIN-EJFV [Suspect]
     Active Substance: ENFORTUMAB VEDOTIN-EJFV
     Dosage: 1.25 MG/KG CYCLE 2
     Route: 042
     Dates: start: 20240919
  5. ENFORTUMAB VEDOTIN-EJFV [Suspect]
     Active Substance: ENFORTUMAB VEDOTIN-EJFV
     Dosage: 1.25 MG/KG CYCLE 2
     Route: 042
     Dates: start: 20240926
  6. ENFORTUMAB VEDOTIN-EJFV [Suspect]
     Active Substance: ENFORTUMAB VEDOTIN-EJFV
     Dosage: 1.25 MG/KG CYCLE 2
     Route: 042
     Dates: start: 20241002, end: 20241002
  7. ENFORTUMAB VEDOTIN-EJFV [Suspect]
     Active Substance: ENFORTUMAB VEDOTIN-EJFV
     Dosage: 1.25 MG/KG CYCLE 3
     Route: 042
     Dates: start: 20241031
  8. ENFORTUMAB VEDOTIN-EJFV [Suspect]
     Active Substance: ENFORTUMAB VEDOTIN-EJFV
     Dosage: 1.25 MG/KG CYCLE 3
     Route: 042
     Dates: start: 20241107, end: 20241107
  9. ENFORTUMAB VEDOTIN-EJFV [Suspect]
     Active Substance: ENFORTUMAB VEDOTIN-EJFV
     Dosage: 1.25 MG/KG CYCLE 4
     Route: 042
     Dates: start: 20241121
  10. ENFORTUMAB VEDOTIN-EJFV [Suspect]
     Active Substance: ENFORTUMAB VEDOTIN-EJFV
     Dosage: 1.25 MG/KG CYCLE 4
     Route: 042
     Dates: start: 20241128, end: 20241128
  11. ENFORTUMAB VEDOTIN-EJFV [Suspect]
     Active Substance: ENFORTUMAB VEDOTIN-EJFV
     Dosage: 1.25 MG/KG CYCLE 5
     Route: 042
     Dates: start: 20241212
  12. ENFORTUMAB VEDOTIN-EJFV [Suspect]
     Active Substance: ENFORTUMAB VEDOTIN-EJFV
     Dosage: 1.25 MG/KG CYCLE 5
     Route: 042
     Dates: start: 20241226, end: 20241226
  13. ENFORTUMAB VEDOTIN-EJFV [Suspect]
     Active Substance: ENFORTUMAB VEDOTIN-EJFV
     Dosage: 1.25 MG/KG CYCLE 6
     Route: 042
     Dates: start: 20250109
  14. ENFORTUMAB VEDOTIN-EJFV [Suspect]
     Active Substance: ENFORTUMAB VEDOTIN-EJFV
     Dosage: 1.25 MG/KG CYCLE 6
     Route: 042
     Dates: start: 20250123, end: 20250123
  15. ENFORTUMAB VEDOTIN-EJFV [Suspect]
     Active Substance: ENFORTUMAB VEDOTIN-EJFV
     Dosage: 1.25 MG/KG CYCLE 7
     Route: 042
     Dates: start: 20250206
  16. ENFORTUMAB VEDOTIN-EJFV [Suspect]
     Active Substance: ENFORTUMAB VEDOTIN-EJFV
     Dosage: 1.25 MG/KG CYCLE 7
     Route: 042
     Dates: start: 20250220, end: 20250220
  17. ENFORTUMAB VEDOTIN-EJFV [Suspect]
     Active Substance: ENFORTUMAB VEDOTIN-EJFV
     Dosage: 1.25 MG/KG CYCLE 8
     Route: 042
     Dates: start: 20250306
  18. ENFORTUMAB VEDOTIN-EJFV [Suspect]
     Active Substance: ENFORTUMAB VEDOTIN-EJFV
     Dosage: 1.25 MG/KG CYCLE 8
     Route: 042
     Dates: start: 20250320, end: 20250320
  19. CHOLINE ALFOSCERATE [Concomitant]
     Active Substance: CHOLINE ALFOSCERATE
     Indication: Cerebral infarction
     Dosage: ONGOING
     Route: 048
     Dates: start: 20071019
  20. PRAVASTATIN SODIUM [Concomitant]
     Active Substance: PRAVASTATIN SODIUM
     Indication: Hyperlipidaemia
     Dosage: ONGOING
     Route: 048
     Dates: start: 20071019
  21. BORYUNGBIO ASTRIX [Concomitant]
     Indication: Cerebral infarction
     Dosage: ONGOING
     Route: 048
     Dates: start: 20240724
  22. OLMESARTAN MEDOXOMIL [Concomitant]
     Active Substance: OLMESARTAN MEDOXOMIL
     Indication: Hypertension
     Dosage: ONGOING
     Route: 048
     Dates: start: 200808
  23. ENCOVER SOLN [Concomitant]
     Indication: Nutritional supplementation
     Route: 048
     Dates: start: 20240903, end: 20240915
  24. WINUF [Concomitant]
     Indication: Nutritional supplementation
     Dosage: ONCE
     Route: 042
     Dates: start: 20241121, end: 20241121
  25. WINUF [Concomitant]
     Dosage: ONCE
     Route: 042
     Dates: start: 20241128, end: 20241128
  26. WINUF [Concomitant]
     Dosage: ONCE
     Route: 042
     Dates: start: 20241212, end: 20241212
  27. WINUF [Concomitant]
     Dosage: ONCE
     Route: 042
     Dates: start: 20241031, end: 20241031
  28. WINUF [Concomitant]
     Dosage: ONCE
     Route: 042
     Dates: start: 20241226, end: 20241226
  29. WINUF [Concomitant]
     Dosage: ONCE
     Route: 042
     Dates: start: 20250109, end: 20250109
  30. WINUF [Concomitant]
     Dosage: ONCE
     Route: 042
     Dates: start: 20250123, end: 20250123
  31. WINUF [Concomitant]
     Dosage: ONCE
     Route: 042
     Dates: start: 20250206, end: 20250206
  32. WINUF [Concomitant]
     Dosage: ONCE
     Route: 042
     Dates: start: 20250306, end: 20250306
  33. NICARDIPINE HYDROCHLORIDE [Concomitant]
     Active Substance: NICARDIPINE HYDROCHLORIDE
     Indication: Hypertension
     Dosage: ONCE
     Route: 042
     Dates: start: 20241128, end: 20241128
  34. VITAMINS [Concomitant]
     Active Substance: VITAMINS
     Indication: Nutritional supplementation
     Dosage: ONCE
     Route: 042
     Dates: start: 20250306, end: 20250306

REACTIONS (13)
  - Asthenia [Recovered/Resolved]
  - Neutropenia [Recovered/Resolved]
  - Headache [Not Recovered/Not Resolved]
  - Condition aggravated [Not Recovered/Not Resolved]
  - Micturition urgency [Not Recovered/Not Resolved]
  - Nocturia [Not Recovered/Not Resolved]
  - Rash [Recovered/Resolved]
  - Constipation [Not Recovered/Not Resolved]
  - Dry skin [Not Recovered/Not Resolved]
  - Diarrhoea [Recovered/Resolved]
  - Headache [Not Recovered/Not Resolved]
  - Gait disturbance [Not Recovered/Not Resolved]
  - Neck pain [Not Recovered/Not Resolved]

NARRATIVE: CASE EVENT DATE: 20240919
